FAERS Safety Report 19123750 (Version 3)
Quarter: 2021Q2

REPORT INFORMATION
  Report Type: Report from Study
  Country: US (occurrence: US)
  Receive Date: 20210412
  Receipt Date: 20210526
  Transmission Date: 20210717
  Serious: Yes (Death)
  Sender: FDA-Public Use
  Company Number: US-JNJFOC-20210404385

PATIENT
  Age: 40 Year
  Sex: Female

DRUGS (2)
  1. SPRAVATO [Suspect]
     Active Substance: ESKETAMINE
     Indication: DEPRESSION
     Dosage: 56 MG, 1 TOTAL DOSE
     Dates: start: 20210102, end: 20210102
  2. SPRAVATO [Suspect]
     Active Substance: ESKETAMINE
     Dosage: 84 MG, 10 TOTAL DOSES
     Dates: start: 20210106, end: 20210210

REACTIONS (2)
  - Product dose omission issue [Unknown]
  - COVID-19 [Fatal]
